FAERS Safety Report 5822758-7 (Version None)
Quarter: 2008Q3

REPORT INFORMATION
  Report Type: 
  Country: None (occurrence: None)
  Receive Date: 20080725
  Receipt Date: 20070907
  Transmission Date: 20090109
  Serious: No
  Sender: FDA-Public Use
  Company Number: US-AMGEN-KDL242546

PATIENT
  Sex: Female
  Weight: 47.2 kg

DRUGS (2)
  1. PROCRIT [Suspect]
     Indication: ANAEMIA OF MALIGNANT DISEASE
     Dates: start: 20060701, end: 20070301
  2. UNSPECIFIED HORMONE REPLACEMENT THERAPY AGENT [Concomitant]

REACTIONS (4)
  - ASTHENIA [None]
  - CRYING [None]
  - WALKING AID USER [None]
  - WHEELCHAIR USER [None]
